FAERS Safety Report 6411268-4 (Version None)
Quarter: 2009Q4

REPORT INFORMATION
  Report Type: 
  Country: None (occurrence: None)
  Receive Date: 20091023
  Receipt Date: 20091014
  Transmission Date: 20100525
  Serious: Yes (Other)
  Sender: FDA-Public Use
  Company Number: JP-BAXTER-2009BH016261

PATIENT
  Age: 57 Year
  Sex: Male

DRUGS (7)
  1. ENDOXAN BAXTER [Suspect]
     Indication: T-CELL LYMPHOMA
     Route: 065
  2. HOLOXAN BAXTER [Suspect]
     Indication: T-CELL LYMPHOMA
     Route: 065
  3. ETOPOSIDE [Suspect]
     Indication: T-CELL LYMPHOMA
     Route: 065
  4. PREDONINE [Suspect]
     Indication: T-CELL LYMPHOMA
     Route: 065
  5. CARBOPLATIN [Suspect]
     Indication: T-CELL LYMPHOMA
     Route: 065
  6. CYTOSINE ARABINOSIDE [Suspect]
     Indication: T-CELL LYMPHOMA
     Route: 065
  7. DEXAMETHASONE [Suspect]
     Indication: T-CELL LYMPHOMA
     Route: 065

REACTIONS (1)
  - DIFFUSE LARGE B-CELL LYMPHOMA [None]
